FAERS Safety Report 19953159 (Version 1)
Quarter: 2021Q4

REPORT INFORMATION
  Report Type: Spontaneous
  Country: US (occurrence: US)
  Receive Date: 20211014
  Receipt Date: 20211014
  Transmission Date: 20220303
  Serious: Yes (Hospitalization)
  Sender: FDA-Public Use
  Company Number: US-STRIDES ARCOLAB LIMITED-2021SP028709

PATIENT
  Age: 50 Year
  Sex: Female

DRUGS (7)
  1. HYDRALAZINE HYDROCHLORIDE [Interacting]
     Active Substance: HYDRALAZINE HYDROCHLORIDE
     Indication: Hypertension
     Dosage: UNK
     Route: 065
  2. NITROGLYCERIN [Interacting]
     Active Substance: NITROGLYCERIN
     Indication: Pulmonary oedema
     Dosage: 0.4 MILLIGRAM, SINGLE
     Route: 060
  3. NITROGLYCERIN [Interacting]
     Active Substance: NITROGLYCERIN
     Dosage: UNK, NITROGLYCERIN DRIP
     Route: 065
  4. NITROGLYCERIN [Interacting]
     Active Substance: NITROGLYCERIN
     Dosage: 250 MICROGRAM PER MINUTE, IV DRIP
     Route: 042
  5. NITROGLYCERIN [Interacting]
     Active Substance: NITROGLYCERIN
     Dosage: 500 MICROGRAM PER MINUTE IV DRIP
     Route: 042
  6. NITROGLYCERIN [Interacting]
     Active Substance: NITROGLYCERIN
     Dosage: 1 MILLIGRAM PER MINUTE, DRIP
     Route: 042
  7. NITROGLYCERIN [Interacting]
     Active Substance: NITROGLYCERIN
     Dosage: THREE DOSES OF 2 MILLIGRAM PER MINUTE, DRIP
     Route: 042

REACTIONS (2)
  - Drug interaction [Unknown]
  - Drug resistance [Unknown]
